FAERS Safety Report 13139326 (Version 1)
Quarter: 2017Q1

REPORT INFORMATION
  Report Type: Spontaneous
  Country: US (occurrence: US)
  Receive Date: 20170123
  Receipt Date: 20170123
  Transmission Date: 20170428
  Serious: Yes (Hospitalization)
  Sender: FDA-Public Use
  Company Number: US-LANNETT COMPANY, INC.-US-2017LAN000394

PATIENT
  Age: 37 Year
  Sex: Male

DRUGS (1)
  1. MORPHINE SULFATE. [Suspect]
     Active Substance: MORPHINE SULFATE
     Indication: PAIN
     Dosage: IMMEDIATE RELEASE TABS CRUSHED AND INJECTED ON 3 OCCASIONS OVER 5-7 DAYS
     Route: 042

REACTIONS (6)
  - Pericarditis [Unknown]
  - Foreign body reaction [Unknown]
  - Chest pain [Unknown]
  - Intentional product misuse [Unknown]
  - Myocarditis [Unknown]
  - Pericardial effusion [Recovered/Resolved]
